FAERS Safety Report 8467031-6 (Version None)
Quarter: 2012Q2

REPORT INFORMATION
  Report Type: 
  Country: None (occurrence: None)
  Receive Date: 20120619
  Receipt Date: 20120605
  Transmission Date: 20120825
  Serious: Yes (Other)
  Sender: FDA-Public Use
  Company Number: 2012S1000644

PATIENT
  Age: 75 Year
  Sex: Female

DRUGS (3)
  1. ASPIRIN [Concomitant]
  2. EFFIENT [Concomitant]
  3. LIVALO [Suspect]
     Indication: BLOOD CHOLESTEROL INCREASED
     Dosage: 2 MG; ;PO
     Route: 048
     Dates: start: 20120410

REACTIONS (4)
  - NASOPHARYNGITIS [None]
  - EPISTAXIS [None]
  - HYPOAESTHESIA [None]
  - PHARYNGEAL HAEMORRHAGE [None]
